FAERS Safety Report 12632866 (Version 2)
Quarter: 2016Q3

REPORT INFORMATION
  Report Type: Spontaneous
  Country: US (occurrence: US)
  Receive Date: 20160808
  Receipt Date: 20160808
  Transmission Date: 20161109
  Serious: No
  Sender: FDA-Public Use
  Company Number: US-BEH-2015057340

PATIENT
  Sex: Female
  Weight: 55 kg

DRUGS (18)
  1. ZYRTEC [Concomitant]
     Active Substance: CETIRIZINE HYDROCHLORIDE
  2. GUAIFENESIN. [Concomitant]
     Active Substance: GUAIFENESIN
  3. OXYGEN. [Concomitant]
     Active Substance: OXYGEN
  4. ESTRADIOL. [Concomitant]
     Active Substance: ESTRADIOL
  5. NASACORT [Concomitant]
     Active Substance: TRIAMCINOLONE ACETONIDE
  6. ZYFLO CR [Concomitant]
     Active Substance: ZILEUTON
  7. ACETAMINOPHEN. [Concomitant]
     Active Substance: ACETAMINOPHEN
  8. ZANTAC [Concomitant]
     Active Substance: RANITIDINE HYDROCHLORIDE
  9. COMBIVENT RESPIMAT [Concomitant]
     Active Substance: ALBUTEROL SULFATE\IPRATROPIUM BROMIDE
  10. HIZENTRA [Suspect]
     Active Substance: HUMAN IMMUNOGLOBULIN G
     Indication: IMMUNODEFICIENCY COMMON VARIABLE
     Dosage: AS DIRECTED
     Route: 058
  11. MUCINEX ER [Concomitant]
  12. DIPHENHYDRAMINE. [Concomitant]
     Active Substance: DIPHENHYDRAMINE
  13. LIDOCAINE. [Concomitant]
     Active Substance: LIDOCAINE
  14. EPIPEN [Concomitant]
     Active Substance: EPINEPHRINE
  15. XOLAIR [Concomitant]
     Active Substance: OMALIZUMAB
  16. PULMICORT TURBUHALER [Concomitant]
     Active Substance: BUDESONIDE
  17. ALBUTEROL SULFATE. [Concomitant]
     Active Substance: ALBUTEROL SULFATE
  18. SINGULAIR [Concomitant]
     Active Substance: MONTELUKAST SODIUM

REACTIONS (2)
  - Nausea [Unknown]
  - Headache [Unknown]
